FAERS Safety Report 10671638 (Version 2)
Quarter: 2015Q1

REPORT INFORMATION
  Report Type: Spontaneous
  Country: US (occurrence: US)
  Receive Date: 20141223
  Receipt Date: 20150323
  Transmission Date: 20150720
  Serious: No
  Sender: FDA-Public Use
  Company Number: US-GLAXOSMITHKLINE-US2014GSK040254

PATIENT
  Sex: Female

DRUGS (1)
  1. IMITREX SPRAY [Suspect]
     Active Substance: SUMATRIPTAN
     Indication: MIGRAINE
     Dosage: 20 MG, U
     Dates: start: 1991

REACTIONS (2)
  - Dysgeusia [Unknown]
  - Malaise [Unknown]
